FAERS Safety Report 10628787 (Version 1)
Quarter: 2014Q4

REPORT INFORMATION
  Report Type: Spontaneous
  Country: US (occurrence: US)
  Receive Date: 20141205
  Receipt Date: 20141205
  Transmission Date: 20150529
  Serious: No
  Sender: FDA-Public Use
  Company Number: US-BRISTOL-MYERS SQUIBB COMPANY-21321690

PATIENT
  Age: 67 Year
  Sex: Male
  Weight: 105 kg

DRUGS (17)
  1. LEVOTHYROXINE SODIUM. [Concomitant]
     Active Substance: LEVOTHYROXINE SODIUM
  2. SIMVASTATIN TAB [Concomitant]
     Active Substance: SIMVASTATIN
  3. RITUXAN [Concomitant]
     Active Substance: RITUXIMAB
  4. METOPROLOL TARTRATE TABS [Concomitant]
  5. NASONEX [Concomitant]
     Active Substance: MOMETASONE FUROATE
  6. TAMSULOSIN HCL [Concomitant]
     Active Substance: TAMSULOSIN
  7. LASIX [Concomitant]
     Active Substance: FUROSEMIDE
  8. METFORMIN [Concomitant]
     Active Substance: METFORMIN HYDROCHLORIDE
  9. TIKOSYN [Concomitant]
     Active Substance: DOFETILIDE
  10. ACYCLOVIR TABS [Concomitant]
  11. PROCHLORPERAZINE MALEATE. [Concomitant]
     Active Substance: PROCHLORPERAZINE MALEATE
  12. COUMADIN [Suspect]
     Active Substance: WARFARIN SODIUM
     Dosage: DOSE REDUCE TO 6 MG?THERPAT STOP DATE:29MAY2014
     Route: 048
  13. ASPIRIN. [Concomitant]
     Active Substance: ASPIRIN
  14. CETIRIZINE [Concomitant]
     Active Substance: CETIRIZINE HYDROCHLORIDE
  15. SLOW-MAG [Concomitant]
     Active Substance: MAGNESIUM CHLORIDE
  16. IBRUTINIB [Suspect]
     Active Substance: IBRUTINIB
     Indication: CHRONIC LYMPHOCYTIC LEUKAEMIA
     Dosage: CAPS
     Route: 065
     Dates: start: 20140430
  17. MULTIVITAMIN [Concomitant]
     Active Substance: VITAMINS

REACTIONS (5)
  - Toxicity to various agents [Unknown]
  - Contusion [Not Recovered/Not Resolved]
  - Rash [Unknown]
  - Haematoma [Not Recovered/Not Resolved]
  - Cheilitis [Not Recovered/Not Resolved]

NARRATIVE: CASE EVENT DATE: 20140527
